FAERS Safety Report 13030391 (Version 1)
Quarter: 2016Q4

REPORT INFORMATION
  Report Type: Spontaneous
  Country: US (occurrence: US)
  Receive Date: 20161215
  Receipt Date: 20161215
  Transmission Date: 20170207
  Serious: Yes (Other)
  Sender: FDA-Public Use
  Company Number: US-WEST-WARD PHARMACEUTICALS CORP.-US-H14001-16-02764

PATIENT
  Age: 14 Year
  Sex: Female

DRUGS (19)
  1. LITHIUM. [Suspect]
     Active Substance: LITHIUM
     Indication: HYPOMANIA
     Route: 065
  2. LITHIUM. [Suspect]
     Active Substance: LITHIUM
     Route: 065
  3. ARIPIPRAZOLE. [Concomitant]
     Active Substance: ARIPIPRAZOLE
     Indication: BIPOLAR DISORDER
     Route: 065
  4. MELATONIN [Concomitant]
     Active Substance: MELATONIN
     Indication: INSOMNIA
     Route: 065
  5. METFORMIN [Concomitant]
     Active Substance: METFORMIN HYDROCHLORIDE
     Indication: GLUCOSE TOLERANCE IMPAIRED
     Route: 065
  6. METFORMIN [Concomitant]
     Active Substance: METFORMIN HYDROCHLORIDE
     Route: 065
  7. CLONAZEPAM. [Concomitant]
     Active Substance: CLONAZEPAM
     Indication: ANXIETY
     Route: 065
  8. MELATONIN [Concomitant]
     Active Substance: MELATONIN
     Route: 065
  9. PRAZOSIN [Concomitant]
     Active Substance: PRAZOSIN
     Route: 065
  10. LEVOTHYROXINE. [Concomitant]
     Active Substance: LEVOTHYROXINE
     Route: 065
  11. LITHIUM. [Suspect]
     Active Substance: LITHIUM
     Route: 065
  12. FLUOXETINE [Concomitant]
     Active Substance: FLUOXETINE HYDROCHLORIDE
     Route: 065
  13. PRAZOSIN [Concomitant]
     Active Substance: PRAZOSIN
     Indication: NIGHTMARE
     Route: 065
  14. LEVOTHYROXINE. [Concomitant]
     Active Substance: LEVOTHYROXINE
     Route: 065
  15. FLUOXETINE [Concomitant]
     Active Substance: FLUOXETINE HYDROCHLORIDE
     Indication: DEPRESSION
     Route: 065
  16. LEVOTHYROXINE. [Concomitant]
     Active Substance: LEVOTHYROXINE
     Indication: HYPOTHYROIDISM
     Route: 065
  17. LEVOMETHYLFOLATE [Concomitant]
     Indication: HYPOTHYROIDISM
     Route: 065
  18. LITHIUM. [Suspect]
     Active Substance: LITHIUM
     Route: 065
  19. PRAZOSIN [Concomitant]
     Active Substance: PRAZOSIN
     Route: 065

REACTIONS (2)
  - Autoimmune thyroiditis [Unknown]
  - Diarrhoea [Recovered/Resolved]
